FAERS Safety Report 9628566 (Version 1)
Quarter: 2013Q4

REPORT INFORMATION
  Report Type: Spontaneous
  Country: US (occurrence: US)
  Receive Date: 20131017
  Receipt Date: 20131017
  Transmission Date: 20140711
  Serious: No
  Sender: FDA-Public Use
  Company Number: US-009507513-1309USA009510

PATIENT
  Sex: Male

DRUGS (3)
  1. ZOCOR [Suspect]
     Dosage: UNKNOWN
     Route: 048
  2. CRESTOR [Suspect]
     Dosage: UNKNOWN
  3. LIPITOR [Suspect]
     Dosage: UNKNOWN

REACTIONS (1)
  - Myalgia [Recovered/Resolved]
